FAERS Safety Report 8219562-1 (Version None)
Quarter: 2012Q1

REPORT INFORMATION
  Report Type: 
  Country: None (occurrence: None)
  Receive Date: 20120319
  Receipt Date: 20120308
  Transmission Date: 20120608
  Serious: Yes (Hospitalization)
  Sender: FDA-Public Use
  Company Number: MX-ASTRAZENECA-2012SE17362

PATIENT
  Age: 669 Month
  Sex: Female
  Weight: 72 kg

DRUGS (10)
  1. ENALAPRIL [Concomitant]
     Route: 048
     Dates: start: 20070101, end: 20120113
  2. CONTRAST DYE [Concomitant]
     Indication: COMPUTERISED TOMOGRAM
     Route: 042
  3. ARIMIDEX [Suspect]
     Indication: BREAST CANCER
     Route: 048
     Dates: start: 20110501
  4. ASPIRIN [Concomitant]
     Indication: THROMBOSIS
     Route: 048
     Dates: start: 20111213, end: 20120114
  5. TAMOXIFEN CITRATE [Concomitant]
     Indication: BREAST CANCER
     Route: 048
     Dates: start: 20100101, end: 20100101
  6. MIOCARDIS [Concomitant]
     Indication: HYPERTENSION
  7. NITROFURANTOINE [Concomitant]
     Indication: KIDNEY INFECTION
     Route: 048
     Dates: start: 20120110
  8. ARIMIDEX [Suspect]
     Route: 048
     Dates: start: 20110601, end: 20111212
  9. CAPTOPRIL [Concomitant]
     Indication: HYPERTENSION
     Route: 048
     Dates: start: 20120114, end: 20120121
  10. NIFEDIPINE [Concomitant]
     Indication: HYPERTENSION
     Route: 048
     Dates: start: 20120115, end: 20120122

REACTIONS (16)
  - BURNING SENSATION [None]
  - VERTIGO [None]
  - FEELING ABNORMAL [None]
  - DIZZINESS [None]
  - ANAL PRURITUS [None]
  - RECTAL HAEMORRHAGE [None]
  - CYANOSIS [None]
  - CONFUSIONAL STATE [None]
  - DRUG ERUPTION [None]
  - TOOTH DISORDER [None]
  - ANORECTAL DISCOMFORT [None]
  - VULVOVAGINAL BURNING SENSATION [None]
  - DYSPHAGIA [None]
  - HYPOAESTHESIA [None]
  - MUSCULOSKELETAL STIFFNESS [None]
  - VAGINAL HAEMORRHAGE [None]
